FAERS Safety Report 10802781 (Version 2)
Quarter: 2015Q1

REPORT INFORMATION
  Report Type: Spontaneous
  Country: US (occurrence: US)
  Receive Date: 20150217
  Receipt Date: 20150317
  Transmission Date: 20150721
  Serious: Yes (Other)
  Sender: FDA-Public Use
  Company Number: US-SA-2015SA017432

PATIENT
  Age: 57 Year
  Sex: Female
  Weight: 59 kg

DRUGS (3)
  1. NASACORT ALLERGY 24HR [Suspect]
     Active Substance: TRIAMCINOLONE ACETONIDE
     Indication: HYPERSENSITIVITY
     Dosage: FREQUENCY: DAILY PRN?DOSE: 1 SPRAY / NOSTRIL DAILY?DOSAGE - 2 SPRAYS IEN?FORM: NASAL SPRAY
     Route: 045
     Dates: start: 20150129, end: 20150201
  2. NASACORT ALLERGY 24HR [Suspect]
     Active Substance: TRIAMCINOLONE ACETONIDE
     Indication: NASAL CONGESTION
     Dosage: FREQUENCY: DAILY PRN?DOSE: 1 SPRAY / NOSTRIL DAILY?DOSAGE - 2 SPRAYS IEN?FORM: NASAL SPRAY
     Route: 045
     Dates: start: 20150129, end: 20150201
  3. COREG [Concomitant]
     Active Substance: CARVEDILOL
     Indication: HYPERTENSION
     Route: 065
     Dates: start: 200310

REACTIONS (6)
  - Pain in extremity [Recovered/Resolved]
  - Peripheral coldness [Recovered/Resolved]
  - Angiopathy [Recovered/Resolved]
  - Sluggishness [Recovered/Resolved]
  - Intermittent claudication [Recovered/Resolved]
  - Pallor [Recovered/Resolved]

NARRATIVE: CASE EVENT DATE: 20150129
